FAERS Safety Report 10293894 (Version 2)
Quarter: 2014Q3

REPORT INFORMATION
  Report Type: Spontaneous
  Country: US (occurrence: US)
  Receive Date: 20140710
  Receipt Date: 20140710
  Transmission Date: 20150326
  Serious: No
  Sender: FDA-Public Use
  Company Number: US-PURDUE-USA-2013-0108986

PATIENT
  Age: 51 Year
  Sex: Female
  Weight: 68.27 kg

DRUGS (2)
  1. BUTRANS [Suspect]
     Active Substance: BUPRENORPHINE
     Indication: PAIN
     Dosage: 10 MCG/HR, WEEKLY
     Route: 062
     Dates: start: 20131113, end: 20131115
  2. RELPAX [Concomitant]
     Active Substance: ELETRIPTAN HYDROBROMIDE
     Indication: MIGRAINE
     Dosage: 80 MG, BID
     Dates: start: 20131113, end: 20131115

REACTIONS (10)
  - Migraine [Recovered/Resolved]
  - Cold sweat [Recovered/Resolved]
  - Vomiting [Recovered/Resolved]
  - Vision blurred [Recovered/Resolved]
  - Diarrhoea [Recovered/Resolved]
  - Nausea [Recovered/Resolved]
  - Dizziness [Recovered/Resolved]
  - Muscle spasms [Unknown]
  - Disturbance in attention [Recovered/Resolved]
  - Lethargy [Unknown]

NARRATIVE: CASE EVENT DATE: 20131113
